FAERS Safety Report 18475497 (Version 1)
Quarter: 2020Q4

REPORT INFORMATION
  Report Type: Spontaneous
  Country: ZA (occurrence: ZA)
  Receive Date: 20201107
  Receipt Date: 20201107
  Transmission Date: 20210114
  Serious: Yes (Hospitalization)
  Sender: FDA-Public Use
  Company Number: ZA-CADILA HEALTHCARE LIMITED-ZA-ZYDUS-057810

PATIENT

DRUGS (3)
  1. RANITIDINE. [Suspect]
     Active Substance: RANITIDINE
     Indication: PREMEDICATION
     Dosage: 1 UNK
     Route: 042
     Dates: start: 20201013
  2. GEMZAR [Concomitant]
     Active Substance: GEMCITABINE HYDROCHLORIDE
     Indication: PRODUCT USED FOR UNKNOWN INDICATION
     Dosage: UNK
     Route: 065
  3. ABRAXANE [Concomitant]
     Active Substance: PACLITAXEL
     Indication: PRODUCT USED FOR UNKNOWN INDICATION
     Dosage: UNK
     Route: 065

REACTIONS (5)
  - Infusion site erythema [Recovering/Resolving]
  - Oedema peripheral [Recovering/Resolving]
  - Generalised oedema [Recovering/Resolving]
  - Infusion site pruritus [Recovering/Resolving]
  - Infusion site pain [Recovering/Resolving]
